FAERS Safety Report 13137890 (Version 5)
Quarter: 2017Q3

REPORT INFORMATION
  Report Type: Report from Study
  Country: None (occurrence: US)
  Receive Date: 20170123
  Receipt Date: 20170809
  Transmission Date: 20171127
  Serious: Yes (Hospitalization, Other)
  Sender: FDA-Public Use
  Company Number: US-ABBVIE-16K-163-1757442-00

PATIENT
  Age: 70 Year
  Sex: Male

DRUGS (2)
  1. CELEBREX [Concomitant]
     Active Substance: CELECOXIB
     Indication: PRODUCT USED FOR UNKNOWN INDICATION
     Dates: start: 20170110
  2. HUMIRA [Suspect]
     Active Substance: ADALIMUMAB
     Indication: RHEUMATOID ARTHRITIS
     Route: 058
     Dates: start: 20160802

REACTIONS (12)
  - Joint swelling [Unknown]
  - Back pain [Unknown]
  - Drug ineffective [Unknown]
  - Tendon rupture [Unknown]
  - Joint stiffness [Recovering/Resolving]
  - Bronchitis [Recovering/Resolving]
  - Medical device site joint infection [Unknown]
  - Loss of personal independence in daily activities [Unknown]
  - Arthralgia [Recovering/Resolving]
  - Musculoskeletal pain [Not Recovered/Not Resolved]
  - Pyrexia [Recovered/Resolved]
  - Impaired healing [Unknown]

NARRATIVE: CASE EVENT DATE: 20161013
